FAERS Safety Report 5142181-0 (Version None)
Quarter: 2006Q4

REPORT INFORMATION
  Report Type: 
  Country: None (occurrence: None)
  Receive Date: 20061027
  Receipt Date: 20061023
  Transmission Date: 20070319
  Serious: Yes (Disabling, Other)
  Sender: FDA-Public Use
  Company Number: HQWYE476124OCT06

PATIENT
  Sex: Male

DRUGS (1)
  1. INDERAL [Suspect]
     Dosage: 20 MG 6X PER 1 DAY, ORAL
     Route: 048
     Dates: start: 19900101

REACTIONS (3)
  - CEREBROVASCULAR ACCIDENT [None]
  - MIGRAINE [None]
  - VISUAL ACUITY REDUCED [None]
